FAERS Safety Report 8315253-7 (Version None)
Quarter: 2012Q2

REPORT INFORMATION
  Report Type: 
  Country: None (occurrence: None)
  Receive Date: 20120426
  Receipt Date: 20120423
  Transmission Date: 20120825
  Serious: Yes (Other)
  Sender: FDA-Public Use
  Company Number: PHEH2012US008240

PATIENT
  Sex: Female

DRUGS (2)
  1. GILENYA [Suspect]
     Indication: MULTIPLE SCLEROSIS
     Dosage: 0.5 MG, QD
     Route: 048
     Dates: start: 20111025, end: 20111109
  2. GILENYA [Suspect]
     Dosage: 0.5 MG, QD
     Route: 048
     Dates: start: 20111129, end: 20111208

REACTIONS (11)
  - PANIC ATTACK [None]
  - HEART RATE INCREASED [None]
  - HYPERTENSION [None]
  - AMNESIA [None]
  - HYPOAESTHESIA [None]
  - OCULAR DISCOMFORT [None]
  - CHEST PAIN [None]
  - SPEECH DISORDER [None]
  - FATIGUE [None]
  - FEELING ABNORMAL [None]
  - PAIN IN EXTREMITY [None]
